FAERS Safety Report 6306370-1 (Version None)
Quarter: 2009Q3

REPORT INFORMATION
  Report Type: 
  Country: None (occurrence: None)
  Receive Date: 20090810
  Receipt Date: 20090729
  Transmission Date: 20100115
  Serious: Yes (Hospitalization)
  Sender: FDA-Public Use
  Company Number: 2009AL002252

PATIENT
  Age: 47 Year
  Sex: Male

DRUGS (12)
  1. DIGOXIN [Suspect]
     Dosage: 0.25MG, DAILY, PO
     Route: 048
     Dates: start: 20040101, end: 20080101
  2. GLUCOPHAGE [Concomitant]
  3. GLYBURIDE [Concomitant]
  4. COREG [Concomitant]
  5. ALDACTONE [Concomitant]
  6. MONOPRIL [Concomitant]
  7. LASIX [Concomitant]
  8. METOLAZONE [Concomitant]
  9. TOPROL-XL [Concomitant]
  10. FOSINOPRIL SODIUM [Concomitant]
  11. ALLOPURINOL [Concomitant]
  12. METFORMIN HCL [Concomitant]

REACTIONS (6)
  - CHEST PAIN [None]
  - DYSPNOEA [None]
  - ECONOMIC PROBLEM [None]
  - ILL-DEFINED DISORDER [None]
  - INJURY [None]
  - MYOCARDIAL INFARCTION [None]
